FAERS Safety Report 9162623 (Version 1)
Quarter: 2013Q1

REPORT INFORMATION
  Report Type: Spontaneous
  Country: US (occurrence: None)
  Receive Date: 20130312
  Receipt Date: 20130312
  Transmission Date: 20140127
  Serious: Yes (Death)
  Sender: FDA-Public Use
  Company Number: B0873093A

PATIENT
  Age: 12 Month
  Sex: 0

DRUGS (4)
  1. MELPHALAN [Suspect]
     Indication: BONE MARROW TRANSPLANT
  2. CYCLOPHOSPHAMIDE [Suspect]
     Indication: BONE MARROW TRANSPLANT
  3. FLUDARABINE PHOSPHATE [Suspect]
     Indication: BONE MARROW TRANSPLANT
  4. RADIOTHERAPY [Suspect]
     Indication: BONE MARROW TRANSPLANT

REACTIONS (3)
  - Acute respiratory distress syndrome [None]
  - Pneumonitis [None]
  - Cytokine storm [None]
